FAERS Safety Report 17678170 (Version 1)
Quarter: 2020Q2

REPORT INFORMATION
  Report Type: Spontaneous
  Country: GB (occurrence: GB)
  Receive Date: 20200417
  Receipt Date: 20200417
  Transmission Date: 20200714
  Serious: Yes (Other)
  Sender: FDA-Public Use
  Company Number: GB-CIPLA LTD.-2020GB02617

PATIENT

DRUGS (18)
  1. PREDNISOLONE. [Suspect]
     Active Substance: PREDNISOLONE
     Dosage: 8 MILLIGRAM, DAILY FOR 2 MONTHS
     Route: 065
  2. METHYLPREDNISOLONE. [Concomitant]
     Active Substance: METHYLPREDNISOLONE
     Indication: PRODUCT USED FOR UNKNOWN INDICATION
     Dosage: UNK
     Route: 065
  3. PREDNISOLONE. [Suspect]
     Active Substance: PREDNISOLONE
     Indication: ANTIVIRAL TREATMENT
     Dosage: 5 MILLIGRAM, DAILY
     Route: 065
  4. GANCICLOVIR. [Suspect]
     Active Substance: GANCICLOVIR
     Indication: CYTOMEGALOVIRUS VIRAEMIA
     Dosage: 2.5 MILLIGRAM/KILOGRAM PER DAY FOR 4 WEEKS
     Route: 042
  5. LEFLUNOMIDE. [Suspect]
     Active Substance: LEFLUNOMIDE
     Indication: CYTOMEGALOVIRUS INFECTION REACTIVATION
     Dosage: UNK, SYSTEMIC; LONG-TERM ANTIVIRAL THERAPY
     Route: 065
  6. FOSCARNET [Suspect]
     Active Substance: FOSCARNET
     Indication: CYTOMEGALOVIRUS INFECTION REACTIVATION
     Dosage: UNK
     Route: 042
  7. IMMUNOGLOBULIN CYTOMEGALOVIRUS [Suspect]
     Active Substance: HUMAN CYTOMEGALOVIRUS IMMUNE GLOBULIN
     Indication: CYTOMEGALOVIRUS INFECTION REACTIVATION
     Dosage: UNK, PER WEEK
     Route: 065
  8. GANCICLOVIR. [Suspect]
     Active Substance: GANCICLOVIR
     Dosage: UNK
     Route: 042
  9. SIROLIMUS. [Suspect]
     Active Substance: SIROLIMUS
     Indication: ANTIVIRAL TREATMENT
     Dosage: 1.5 MILLIGRAM DAILY
     Route: 065
  10. PREDNISOLONE. [Suspect]
     Active Substance: PREDNISOLONE
     Indication: IMMUNOSUPPRESSION
     Dosage: 15 MILLIGRAM PER DAY
     Route: 065
  11. IMMUNOGLOBULIN CYTOMEGALOVIRUS [Suspect]
     Active Substance: HUMAN CYTOMEGALOVIRUS IMMUNE GLOBULIN
     Indication: CYTOMEGALOVIRUS CHORIORETINITIS
     Dosage: UNK
     Route: 065
  12. VALGANCICLOVIR. [Suspect]
     Active Substance: VALGANCICLOVIR
     Indication: CYTOMEGALOVIRUS INFECTION REACTIVATION
     Dosage: 450 MILLIGRAM DAILY
     Route: 048
  13. AZATHIOPRINE. [Suspect]
     Active Substance: AZATHIOPRINE
     Indication: IMMUNOSUPPRESSION
     Dosage: UNK
     Route: 065
  14. IMMUNOGLOBULIN CYTOMEGALOVIRUS [Suspect]
     Active Substance: HUMAN CYTOMEGALOVIRUS IMMUNE GLOBULIN
     Dosage: 2 MILLIGRAM/KILOGRAM PER WEEK
     Route: 065
  15. GANCICLOVIR. [Suspect]
     Active Substance: GANCICLOVIR
     Indication: CYTOMEGALOVIRUS CHORIORETINITIS
     Dosage: 2 MILLIGRAM WEEKLY LEFT EYE INTRAVITREAL GCV (0.2 MG/0.1 ML) FOR 4 WEEKS
     Route: 031
  16. FOSCARNET [Suspect]
     Active Substance: FOSCARNET
     Dosage: 2.4 MILLIGRAM/0.1 ML INITIATED IN THE RIGHT THEN THE LEFT EYE AND REPEATED AT 1 TO 2 WEEKS INTERVAL
     Route: 031
  17. ANTITHYMOCYTE IMMUNOGLOBULIN (RABBIT) [Suspect]
     Active Substance: LAPINE T-LYMPHOCYTE IMMUNE GLOBULIN
     Indication: IMMUNOSUPPRESSION
     Dosage: 1.5 MILLIGRAM/KILOGRAM FOR 3 DAYS
     Route: 065
  18. TACROLIMUS. [Suspect]
     Active Substance: TACROLIMUS
     Indication: ANTIVIRAL TREATMENT
     Dosage: 2 MILLIGRAM, BID
     Route: 048

REACTIONS (8)
  - Cytomegalovirus infection reactivation [Recovered/Resolved]
  - Nephropathy toxic [Recovered/Resolved]
  - Pneumonia cytomegaloviral [Recovered/Resolved]
  - Renal impairment [Recovered/Resolved]
  - Product use issue [Recovered/Resolved]
  - Off label use [Unknown]
  - Drug resistance [Recovered/Resolved]
  - Cytomegalovirus chorioretinitis [Recovered/Resolved]
